FAERS Safety Report 5295850-6 (Version None)
Quarter: 2007Q2

REPORT INFORMATION
  Report Type: 
  Country: None (occurrence: None)
  Receive Date: 20070413
  Receipt Date: 20070405
  Transmission Date: 20071010
  Serious: Yes (Life-Threatening, Hospitalization, Other)
  Sender: FDA-Public Use
  Company Number: HQWYE992221SEP06

PATIENT
  Sex: Female
  Weight: 48 kg

DRUGS (7)
  1. MYLOTARG [Suspect]
     Indication: ACUTE MYELOID LEUKAEMIA RECURRENT
     Route: 041
     Dates: start: 20060613, end: 20060613
  2. MYLOTARG [Suspect]
     Route: 041
     Dates: start: 20060627, end: 20060627
  3. RYTHMODAN - SLOW RELEASE [Concomitant]
     Dosage: 300 MG DAILY
     Route: 048
     Dates: start: 20060508
  4. FUNGUARD [Concomitant]
     Route: 041
     Dates: start: 20060605, end: 20060621
  5. ASPARA K [Concomitant]
     Route: 041
     Dates: start: 20060617, end: 20060619
  6. POTASSIUM CHLORIDE [Concomitant]
     Dosage: UNKNOWN
     Route: 041
     Dates: start: 20060612, end: 20060616
  7. VANCOMYCIN HYDROCHLORIDE [Concomitant]
     Route: 041
     Dates: start: 20060605, end: 20060621

REACTIONS (4)
  - COLITIS [None]
  - NEUTROPENIA [None]
  - PANCYTOPENIA [None]
  - SEPSIS [None]
